FAERS Safety Report 7546149-6 (Version None)
Quarter: 2011Q2

REPORT INFORMATION
  Report Type: 
  Country: None (occurrence: None)
  Receive Date: 20110614
  Receipt Date: 20031024
  Transmission Date: 20111010
  Serious: Yes (Death, Other)
  Sender: FDA-Public Use
  Company Number: PHFR2003GB02303

PATIENT
  Sex: Male

DRUGS (1)
  1. CLOZAPINE [Suspect]
     Indication: SCHIZOPHRENIA
     Dosage: 500 MG, QD
     Route: 048
     Dates: start: 19950718

REACTIONS (13)
  - NON-SMALL CELL LUNG CANCER [None]
  - EPISTAXIS [None]
  - FATIGUE [None]
  - WEIGHT DECREASED [None]
  - DYSPNOEA [None]
  - ANAEMIA [None]
  - CIRCULATORY COLLAPSE [None]
  - LOWER RESPIRATORY TRACT INFECTION [None]
  - PRODUCTIVE COUGH [None]
  - COUGH [None]
  - HAEMOGLOBIN DECREASED [None]
  - MOUTH HAEMORRHAGE [None]
  - BACK PAIN [None]
